FAERS Safety Report 6574457-4 (Version None)
Quarter: 2010Q1

REPORT INFORMATION
  Report Type: 
  Country: None (occurrence: None)
  Receive Date: 20100209
  Receipt Date: 20090707
  Transmission Date: 20100710
  Serious: No
  Sender: FDA-Public Use
  Company Number: A0795741A

PATIENT
  Sex: Male

DRUGS (2)
  1. PAROXETINE HCL [Suspect]
     Indication: PREMATURE EJACULATION
     Dosage: 10MG PER DAY
     Route: 048
     Dates: start: 20090707
  2. UNKNOWN [Concomitant]

REACTIONS (1)
  - DRY MOUTH [None]
